FAERS Safety Report 6286370-0 (Version None)
Quarter: 2009Q3

REPORT INFORMATION
  Report Type: 
  Country: None (occurrence: None)
  Receive Date: 20090727
  Receipt Date: 20090727
  Transmission Date: 20100115
  Serious: No
  Sender: FDA-Public Use
  Company Number: None

PATIENT
  Age: 66 Year
  Sex: Female

DRUGS (4)
  1. CELECOXIB [Suspect]
     Dates: start: 20080515, end: 20080611
  2. SIMVASTATIN [Concomitant]
  3. CYMBALTA [Concomitant]
  4. METHOTREXATE [Concomitant]

REACTIONS (3)
  - AUTOIMMUNE HEPATITIS [None]
  - LIVER INJURY [None]
  - MELAENA [None]
